FAERS Safety Report 23365414 (Version 1)
Quarter: 2024Q1

REPORT INFORMATION
  Report Type: Spontaneous
  Country: US (occurrence: US)
  Receive Date: 20240104
  Receipt Date: 20240104
  Transmission Date: 20240410
  Serious: Yes (Hospitalization)
  Sender: FDA-Public Use
  Company Number: US-MYLANLABS-2024M1000345

PATIENT
  Age: 73 Year
  Sex: Male

DRUGS (1)
  1. GLIPIZIDE [Suspect]
     Active Substance: GLIPIZIDE
     Indication: Drug therapy
     Dosage: 2 DOSAGE FORM, BID (ADMINISTERED TWO TABLETS TWICE DAILY)
     Route: 065

REACTIONS (3)
  - Hypoglycaemia [Unknown]
  - Wrong product administered [Unknown]
  - Product storage error [Unknown]
